FAERS Safety Report 7782943-4 (Version None)
Quarter: 2011Q3

REPORT INFORMATION
  Report Type: 
  Country: None (occurrence: None)
  Receive Date: 20110928
  Receipt Date: 20110923
  Transmission Date: 20111222
  Serious: Yes (Other)
  Sender: FDA-Public Use
  Company Number: US-PFIZER INC-2011227409

PATIENT
  Sex: Female

DRUGS (2)
  1. DILANTIN [Suspect]
     Dosage: 100 MG
     Route: 048
  2. DILANTIN [Suspect]
     Dosage: 50 MG
     Route: 048

REACTIONS (1)
  - EPILEPSY [None]
